FAERS Safety Report 9226925 (Version 1)
Quarter: 2013Q2

REPORT INFORMATION
  Report Type: Spontaneous
  Country: US (occurrence: None)
  Receive Date: 20130410
  Receipt Date: 20130410
  Transmission Date: 20140414
  Serious: Yes (Other)
  Sender: FDA-Public Use
  Company Number: SYM-2013-02635

PATIENT
  Age: 70 Year
  Sex: Female

DRUGS (7)
  1. XENAZINE [Suspect]
     Indication: TARDIVE DYSKINESIA
     Dates: start: 201210
  2. CELEXA (CITALOPRAM HYDROBROMIDE) (60 MILLIGRAM) (CITALOPRAM HYDROBROMIDE) [Concomitant]
  3. XANAX (ALPRAZOLAM) (0.5 MILLIGRAM) (ALPRAZOLAM) [Concomitant]
  4. LAMICTAL(LAMOTRIGINE)(200 MILLIGRAM)(LAMOTRIGINE) [Concomitant]
  5. Z000R(SIMVASTATIN)(20 MILLIGRAM)(SIMVASTATIN) [Concomitant]
  6. LISINOPRIL(LISINOPRIL)(40 MILLIGRAM)(LISINOPRIL) [Concomitant]
  7. OXYBUTYNIN(OXYBUTYNIN)(10 MILLIGRAM)(OXYBUTYNIN) [Concomitant]

REACTIONS (1)
  - Tremor [None]
